FAERS Safety Report 8932500 (Version 1)
Quarter: 2012Q4

REPORT INFORMATION
  Report Type: Spontaneous
  Country: JP (occurrence: None)
  Receive Date: 20121120
  Receipt Date: 20121120
  Transmission Date: 20130627
  Serious: Yes (Other)
  Sender: FDA-Public Use
  Company Number: FK201203359

PATIENT
  Age: 50 Year
  Sex: Male

DRUGS (3)
  1. CYTARABINE [Suspect]
     Indication: CHRONIC MYELOID LEUKAEMIA
  2. CYCLOPHOSPHAMIDE [Suspect]
  3. BUSULFAN [Suspect]

REACTIONS (1)
  - Cystitis haemorrhagic [None]
